FAERS Safety Report 24354777 (Version 2)
Quarter: 2024Q4

REPORT INFORMATION
  Report Type: Spontaneous
  Country: US (occurrence: US)
  Receive Date: 20240923
  Receipt Date: 20241025
  Transmission Date: 20250115
  Serious: No
  Sender: MILLICENT HOLDINGS
  Company Number: US-Millicent Holdings Ltd.-MILL20241160

PATIENT
  Age: 69 Year
  Sex: Female

DRUGS (2)
  1. INTRAROSA [Suspect]
     Active Substance: PRASTERONE
     Indication: Dyspareunia
     Dosage: 1
     Route: 067
     Dates: start: 20240914
  2. INTRAROSA [Suspect]
     Active Substance: PRASTERONE
     Dosage: 1
     Route: 067

REACTIONS (2)
  - Poor quality product administered [Recovered/Resolved]
  - Product physical issue [Unknown]

NARRATIVE: CASE EVENT DATE: 20240914
